FAERS Safety Report 13864720 (Version 1)
Quarter: 2017Q3

REPORT INFORMATION
  Report Type: Spontaneous
  Country: GB (occurrence: GB)
  Receive Date: 20170814
  Receipt Date: 20170814
  Transmission Date: 20171127
  Serious: Yes (Hospitalization)
  Sender: FDA-Public Use
  Company Number: GB-PFIZER INC-2017295514

PATIENT
  Age: 63 Year
  Sex: Female
  Weight: 69 kg

DRUGS (5)
  1. DENOSUMAB [Concomitant]
     Active Substance: DENOSUMAB
     Dosage: 120 MG, CYCLIC (EVERY 28 DAYS)
     Route: 058
     Dates: start: 20170221
  2. DENOSUMAB [Concomitant]
     Active Substance: DENOSUMAB
     Dosage: 120 MG, CYCLIC (EVERY 28 DAYS)
     Route: 058
     Dates: start: 20170613
  3. PALBOCICLIB [Suspect]
     Active Substance: PALBOCICLIB
     Dosage: 125 MG, CYCLIC (125 MG EVERY 21 DAYS)
     Route: 048
     Dates: start: 20170615, end: 20170713
  4. ADCAL D3 [Concomitant]
     Active Substance: CALCIUM CARBONATE\CHOLECALCIFEROL
     Indication: MINERAL SUPPLEMENTATION
     Dosage: UNK
     Route: 048
  5. LETROZOLE. [Concomitant]
     Active Substance: LETROZOLE
     Dosage: 2.5 MG, UNK
     Route: 048
     Dates: start: 201702

REACTIONS (6)
  - Blood urea decreased [Recovered/Resolved]
  - Diarrhoea [Unknown]
  - Blood phosphorus decreased [Recovered/Resolved]
  - Hypocalcaemia [Recovered/Resolved]
  - Neutrophil count decreased [Recovered/Resolved]
  - Blood parathyroid hormone increased [Recovered/Resolved]

NARRATIVE: CASE EVENT DATE: 20170629
